FAERS Safety Report 6713823-0 (Version None)
Quarter: 2010Q2

REPORT INFORMATION
  Report Type: 
  Country: None (occurrence: None)
  Receive Date: 20100506
  Receipt Date: 20100426
  Transmission Date: 20101027
  Serious: Yes (Hospitalization)
  Sender: FDA-Public Use
  Company Number: DE-PFIZER INC-2010052256

PATIENT
  Age: 78 Year
  Sex: Male

DRUGS (10)
  1. SUNITINIB MALATE [Suspect]
     Indication: RENAL CELL CARCINOMA
     Dosage: 50 MG, 1X/DAY
     Route: 048
     Dates: start: 20100326
  2. TROMCARDIN [Concomitant]
     Dosage: UNK
  3. TAMSULOSIN [Concomitant]
     Dosage: 0.4 MG, UNK
  4. PANTOPRAZOL [Concomitant]
     Dosage: 40 MG, UNK
  5. VERAHEXAL [Concomitant]
     Dosage: 120 MG, UNK
  6. TORASEMIDE [Concomitant]
     Dosage: 5 MG, UNK
  7. MARCUMAR [Concomitant]
     Dosage: 5 MG, UNK
  8. PROSTAGUTT [Concomitant]
     Dosage: 40 MG, UNK
  9. ALLOPURINOL [Concomitant]
     Dosage: 150 MG, UNK
  10. PLANUM [Concomitant]
     Dosage: 20 MG, UNK

REACTIONS (1)
  - TACHYCARDIA [None]
